FAERS Safety Report 5244085-1 (Version None)
Quarter: 2007Q1

REPORT INFORMATION
  Report Type: 
  Country: None (occurrence: None)
  Receive Date: 20070222
  Receipt Date: 20070209
  Transmission Date: 20070707
  Serious: Yes (Life-Threatening)
  Sender: FDA-Public Use
  Company Number: FR-AVENTIS-200311825FR

PATIENT
  Sex: Male
  Weight: 80 kg

DRUGS (9)
  1. KETEK [Suspect]
     Route: 048
     Dates: start: 20030329, end: 20030330
  2. SOLUPRED                           /00016201/ [Suspect]
     Route: 048
     Dates: start: 20030329
  3. AMAREL [Concomitant]
     Route: 048
  4. MESTINON [Concomitant]
     Route: 048
  5. GLUCOPHAGE [Concomitant]
     Route: 048
  6. LIPANTHYL [Concomitant]
  7. VENTOLINE                          /00139501/ [Concomitant]
     Route: 055
  8. SOLU-MEDROL [Concomitant]
     Dates: start: 20030301, end: 20030301
  9. ROCEPHIN [Concomitant]
     Dates: start: 20030301, end: 20030301

REACTIONS (4)
  - CARDIAC ARREST [None]
  - DYSPNOEA [None]
  - MYASTHENIA GRAVIS CRISIS [None]
  - RESPIRATORY ARREST [None]
